FAERS Safety Report 8934766 (Version 1)
Quarter: 2012Q4

REPORT INFORMATION
  Report Type: 
  Country: IQ (occurrence: US)
  Receive Date: 20121129
  Receipt Date: 20121129
  Transmission Date: 20130627
  Serious: Yes (Other)
  Sender: FDA-Public Use
  Company Number: IQ-PFIZER INC-2011080917

PATIENT

DRUGS (1)
  1. LYRICA [Suspect]
     Dosage: 75 mg, 2x/day
     Route: 048

REACTIONS (1)
  - Hearing impaired [Unknown]
